FAERS Safety Report 7334688-2 (Version None)
Quarter: 2011Q1

REPORT INFORMATION
  Report Type: 
  Country: None (occurrence: None)
  Receive Date: 20110307
  Receipt Date: 20110223
  Transmission Date: 20110831
  Serious: Yes (Other)
  Sender: FDA-Public Use
  Company Number: TR-US-EMD SERONO, INC.-7038986

PATIENT
  Sex: Female
  Weight: 53 kg

DRUGS (5)
  1. MODAFINIL [Concomitant]
     Indication: SLEEP DISORDER
     Dates: end: 20101111
  2. DODEX AMP [Concomitant]
     Indication: ANAEMIA
     Dates: end: 20101111
  3. REBIF [Suspect]
     Indication: MULTIPLE SCLEROSIS
     Route: 058
     Dates: start: 20100507, end: 20101111
  4. IBUPROFEN [Concomitant]
     Indication: ANALGESIC THERAPY
     Dates: end: 20101111
  5. CIPRALEX [Concomitant]
     Indication: MAJOR DEPRESSION

REACTIONS (2)
  - HYPERSENSITIVITY [None]
  - AUTOIMMUNE THYROIDITIS [None]
